FAERS Safety Report 7628747-4 (Version None)
Quarter: 2011Q3

REPORT INFORMATION
  Report Type: 
  Country: None (occurrence: None)
  Receive Date: 20110720
  Receipt Date: 20110720
  Transmission Date: 20111222
  Serious: Yes (Life-Threatening, Disabling, Other)
  Sender: FDA-Public Use
  Company Number: None

PATIENT
  Age: 63 Year
  Sex: Female
  Weight: 136.0791 kg

DRUGS (2)
  1. ATENOLOL [Suspect]
     Indication: BLOOD PRESSURE
     Dosage: 1- 50MG 1 A DAY
     Dates: start: 20110202, end: 20110225
  2. ATENOLOL [Suspect]
     Indication: BLOOD PRESSURE
     Dosage: 1- 50MG 1 A DAY
     Dates: start: 20110101, end: 20110201

REACTIONS (4)
  - DYSSTASIA [None]
  - FEELING ABNORMAL [None]
  - HEART RATE DECREASED [None]
  - PRODUCT SUBSTITUTION ISSUE [None]
